FAERS Safety Report 5196303-6 (Version None)
Quarter: 2007Q1

REPORT INFORMATION
  Report Type: 
  Country: None (occurrence: None)
  Receive Date: 20070102
  Receipt Date: 20061221
  Transmission Date: 20070707
  Serious: Yes (Other)
  Sender: FDA-Public Use
  Company Number: US-PFIZER INC-2006153897

PATIENT
  Sex: Female
  Weight: 63.1 kg

DRUGS (3)
  1. ZYVOX [Suspect]
     Indication: STAPHYLOCOCCAL INFECTION
     Route: 042
     Dates: start: 20061124, end: 20061208
  2. ZOSYN [Concomitant]
  3. VANCOMYCIN [Concomitant]

REACTIONS (8)
  - BLOOD CREATININE DECREASED [None]
  - BLOOD PRESSURE DECREASED [None]
  - BONE MARROW FAILURE [None]
  - HEART RATE INCREASED [None]
  - ILL-DEFINED DISORDER [None]
  - PULMONARY HAEMATOMA [None]
  - SWELLING [None]
  - WHITE BLOOD CELL COUNT DECREASED [None]
